FAERS Safety Report 8557295-2 (Version None)
Quarter: 2012Q3

REPORT INFORMATION
  Report Type: 
  Country: None (occurrence: None)
  Receive Date: 20120726
  Receipt Date: 20120726
  Transmission Date: 20120928
  Serious: Yes (Hospitalization)
  Sender: FDA-Public Use
  Company Number: None

PATIENT
  Age: 81 Year
  Sex: Female

DRUGS (1)
  1. BENICAR HCT [Suspect]
     Dosage: 1 TABLET DAILY BY MOUTH
     Route: 048
     Dates: start: 20090807, end: 20111215

REACTIONS (2)
  - LOSS OF CONSCIOUSNESS [None]
  - DEHYDRATION [None]
